FAERS Safety Report 5905906-X (Version None)
Quarter: 2008Q4

REPORT INFORMATION
  Report Type: 
  Country: None (occurrence: None)
  Receive Date: 20081002
  Receipt Date: 20080926
  Transmission Date: 20090506
  Serious: Yes (Hospitalization)
  Sender: FDA-Public Use
  Company Number: US-ASTRAZENECA-2008UW20594

PATIENT
  Age: 23892 Day
  Sex: Male
  Weight: 63.3 kg

DRUGS (4)
  1. IRESSA [Suspect]
     Indication: OESOPHAGEAL CANCER METASTATIC
     Route: 048
     Dates: start: 20080819, end: 20080923
  2. ZOLOFT [Suspect]
     Indication: DEPRESSION
     Route: 048
     Dates: end: 20080920
  3. REMERON [Suspect]
     Indication: DEPRESSION
     Route: 048
     Dates: start: 20080917
  4. MEGACE [Suspect]
     Indication: DECREASED APPETITE
     Route: 048
     Dates: start: 20080812

REACTIONS (2)
  - DISORIENTATION [None]
  - HALLUCINATION [None]
